FAERS Safety Report 5142343-2 (Version None)
Quarter: 2006Q4

REPORT INFORMATION
  Report Type: 
  Country: None (occurrence: None)
  Receive Date: 20061102
  Receipt Date: 20061026
  Transmission Date: 20070319
  Serious: Yes (Hospitalization)
  Sender: FDA-Public Use
  Company Number: US-GLAXOSMITHKLINE-A0625086A

PATIENT
  Age: 18 Year
  Sex: Female

DRUGS (3)
  1. ZOFRAN [Suspect]
     Route: 048
     Dates: start: 20061024, end: 20061024
  2. ZOFRAN [Suspect]
     Indication: PREMEDICATION
     Route: 042
     Dates: start: 20061024, end: 20061024
  3. ZOVIA 1/35E-21 [Concomitant]

REACTIONS (8)
  - BLINDNESS [None]
  - DYSPNOEA [None]
  - HYPERVENTILATION [None]
  - NAUSEA [None]
  - RASH [None]
  - RASH PRURITIC [None]
  - SWELLING FACE [None]
  - VOMITING [None]
